FAERS Safety Report 13104171 (Version 1)
Quarter: 2017Q1

REPORT INFORMATION
  Report Type: Spontaneous
  Country: US (occurrence: US)
  Receive Date: 20170110
  Receipt Date: 20170110
  Transmission Date: 20170428
  Serious: Yes (Hospitalization)
  Sender: FDA-Public Use
  Company Number: None

PATIENT
  Age: 55 Year
  Sex: Female

DRUGS (1)
  1. LETAIRIS [Suspect]
     Active Substance: AMBRISENTAN
     Indication: PULMONARY EMBOLISM
     Route: 048
     Dates: start: 20150824

REACTIONS (4)
  - Dyspnoea [None]
  - Chronic obstructive pulmonary disease [None]
  - Productive cough [None]
  - Wheezing [None]

NARRATIVE: CASE EVENT DATE: 20170103
